FAERS Safety Report 11853624 (Version 1)
Quarter: 2015Q4

REPORT INFORMATION
  Report Type: Spontaneous
  Country: US (occurrence: US)
  Receive Date: 20151219
  Receipt Date: 20151219
  Transmission Date: 20160305
  Serious: No
  Sender: FDA-Public Use
  Company Number: US-BAUSCH-BL-2015-019124

PATIENT
  Sex: Female

DRUGS (1)
  1. XENAZINE [Suspect]
     Active Substance: TETRABENAZINE
     Indication: TARDIVE DYSKINESIA

REACTIONS (4)
  - Listless [Recovering/Resolving]
  - Fall [Unknown]
  - Off label use [Not Recovered/Not Resolved]
  - Parkinsonism [Recovering/Resolving]
